FAERS Safety Report 7579072-1 (Version None)
Quarter: 2011Q2

REPORT INFORMATION
  Report Type: 
  Country: None (occurrence: None)
  Receive Date: 20110628
  Receipt Date: 20110620
  Transmission Date: 20111010
  Serious: Yes (Congenital Anomaly, Other)
  Sender: FDA-Public Use
  Company Number: US-CEPHALON-2011003165

PATIENT
  Sex: Male

DRUGS (1)
  1. PROVIGIL [Suspect]
     Route: 064

REACTIONS (3)
  - CONGENITAL TORTICOLLIS [None]
  - BRACHYCEPHALY [None]
  - GASTROOESOPHAGEAL REFLUX DISEASE [None]
